FAERS Safety Report 16238563 (Version 2)
Quarter: 2019Q2

REPORT INFORMATION
  Report Type: Spontaneous
  Country: US (occurrence: US)
  Receive Date: 20190425
  Receipt Date: 20190529
  Transmission Date: 20190711
  Serious: Yes (Other)
  Sender: FDA-Public Use
  Company Number: US-PFIZER INC-2019174736

PATIENT
  Age: 83 Year
  Sex: Female

DRUGS (6)
  1. PROTONIX [Suspect]
     Active Substance: PANTOPRAZOLE SODIUM
     Dosage: UNK
     Dates: start: 20080101, end: 20181231
  2. PRILOSEC [Suspect]
     Active Substance: OMEPRAZOLE MAGNESIUM
     Dosage: 40 MG, DAILY
     Dates: start: 20080101, end: 20181231
  3. PREVACID [Suspect]
     Active Substance: LANSOPRAZOLE
     Dosage: 40 MG, DAILY
     Dates: start: 20080101, end: 20181231
  4. PRILOSEC OTC [Suspect]
     Active Substance: OMEPRAZOLE MAGNESIUM
     Dosage: 20 MG, DAILY
     Dates: start: 20080101, end: 20181231
  5. OMEPRAZOLE. [Suspect]
     Active Substance: OMEPRAZOLE
     Dosage: 20 MG, DAILY
     Dates: start: 20070104, end: 20171031
  6. NEXIUM [Suspect]
     Active Substance: ESOMEPRAZOLE MAGNESIUM
     Dosage: UNK

REACTIONS (2)
  - Acute kidney injury [Not Recovered/Not Resolved]
  - Chronic kidney disease [Not Recovered/Not Resolved]

NARRATIVE: CASE EVENT DATE: 201710
